FAERS Safety Report 16321727 (Version 1)
Quarter: 2019Q2

REPORT INFORMATION
  Report Type: Spontaneous
  Country: DE (occurrence: DE)
  Receive Date: 20190516
  Receipt Date: 20190516
  Transmission Date: 20190711
  Serious: Yes (Hospitalization)
  Sender: FDA-Public Use
  Company Number: DE-JNJFOC-20190514904

PATIENT
  Age: 24 Year
  Sex: Male

DRUGS (4)
  1. TRUXAL [Concomitant]
     Active Substance: CHLORPROTHIXENE
     Route: 065
     Dates: start: 20080424, end: 20080505
  2. TAVOR [Concomitant]
     Route: 065
     Dates: start: 20080510
  3. INVEGA [Suspect]
     Active Substance: PALIPERIDONE
     Indication: PRODUCT USED FOR UNKNOWN INDICATION
     Route: 048
     Dates: start: 20080423, end: 20080513
  4. ABILIFY [Concomitant]
     Active Substance: ARIPIPRAZOLE
     Route: 065
     Dates: start: 20080513, end: 20080515

REACTIONS (6)
  - Myoglobin blood increased [Recovered/Resolved]
  - Disturbance in attention [Recovered/Resolved]
  - Blood creatine phosphokinase increased [Recovered/Resolved]
  - Muscle rigidity [Recovered/Resolved]
  - Blood lactate dehydrogenase increased [Recovered/Resolved]
  - Body temperature increased [Recovered/Resolved]

NARRATIVE: CASE EVENT DATE: 20080513
